FAERS Safety Report 15276154 (Version 1)
Quarter: 2018Q3

REPORT INFORMATION
  Report Type: Spontaneous
  Country: CO (occurrence: CO)
  Receive Date: 20180814
  Receipt Date: 20180814
  Transmission Date: 20181010
  Serious: Yes (Death, Hospitalization, Other)
  Sender: FDA-Public Use
  Company Number: CO-BAXTER-2018BAX021580

PATIENT
  Age: 85 Year
  Sex: Male
  Weight: 41 kg

DRUGS (2)
  1. DIANEAL LOW CALCIUM WITH DEXTROSE [Suspect]
     Active Substance: CALCIUM CHLORIDE\DEXTROSE\MAGNESIUM CHLORIDE\SODIUM CHLORIDE\SODIUM LACTATE
     Indication: CHRONIC KIDNEY DISEASE
     Route: 033
     Dates: start: 20170822, end: 20180702
  2. DIANEAL LOW CALCIUM WITH DEXTROSE [Suspect]
     Active Substance: CALCIUM CHLORIDE\DEXTROSE\MAGNESIUM CHLORIDE\SODIUM CHLORIDE\SODIUM LACTATE
     Indication: CHRONIC KIDNEY DISEASE
     Route: 033
     Dates: start: 20170822, end: 20180702

REACTIONS (9)
  - Depression [Not Recovered/Not Resolved]
  - Anaemia [Recovered/Resolved]
  - Localised infection [Unknown]
  - Hypersomnia [Not Recovered/Not Resolved]
  - Arterial occlusive disease [Not Recovered/Not Resolved]
  - Infarction [Unknown]
  - Hypotension [Not Recovered/Not Resolved]
  - Death [Fatal]
  - Disease complication [Not Recovered/Not Resolved]

NARRATIVE: CASE EVENT DATE: 201801
